FAERS Safety Report 18777822 (Version 2)
Quarter: 2021Q2

REPORT INFORMATION
  Report Type: Spontaneous
  Country: US (occurrence: US)
  Receive Date: 20210122
  Receipt Date: 20210423
  Transmission Date: 20210717
  Serious: No
  Sender: FDA-Public Use
  Company Number: 2020SGN02052

PATIENT
  Age: 73 Year
  Sex: Female

DRUGS (3)
  1. TUKYSA [Suspect]
     Active Substance: TUCATINIB
     Indication: BREAST CANCER
     Dosage: UNK, BID
     Route: 048
     Dates: start: 202001
  2. HERCEPTIN [Concomitant]
     Active Substance: TRASTUZUMAB
     Indication: BREAST CANCER
  3. ATARAX [Concomitant]
     Active Substance: HYDROXYZINE HYDROCHLORIDE
     Indication: PRURITUS

REACTIONS (17)
  - Nausea [Unknown]
  - Abdominal pain upper [Unknown]
  - Pruritus [Unknown]
  - Fatigue [Unknown]
  - Off label use [Unknown]
  - Vision blurred [Unknown]
  - Nail disorder [Unknown]
  - Balance disorder [Unknown]
  - Neuropathy peripheral [Unknown]
  - Epistaxis [Unknown]
  - Arthralgia [Unknown]
  - Feeling abnormal [Unknown]
  - Pain in extremity [Unknown]
  - Alopecia [Unknown]
  - Headache [Unknown]
  - Hot flush [Unknown]
  - Somnolence [Unknown]

NARRATIVE: CASE EVENT DATE: 20200505
